FAERS Safety Report 8058108-8 (Version None)
Quarter: 2012Q1

REPORT INFORMATION
  Report Type: 
  Country: None (occurrence: None)
  Receive Date: 20120113
  Receipt Date: 20120103
  Transmission Date: 20120608
  Serious: Yes (Hospitalization)
  Sender: FDA-Public Use
  Company Number: DSA_46990_2011

PATIENT
  Age: 76 Year
  Sex: Female

DRUGS (6)
  1. MONO-TILDIEM (MONO-TILDIEM - DILTIAZEM HYDROCHLORIDE MODIFIED-RELEASE [Suspect]
     Indication: HYPERTENSION
     Dosage: (200 MG QD ORAL)
     Route: 048
     Dates: start: 20100622, end: 20100628
  2. IRBESARTAN [Concomitant]
  3. ATORVASTATIN CALCIUM [Concomitant]
  4. KARDEGIC (KARGEGIC - ACETYLSALICYLATE LYSINE ) 75 MG (NOT SPECIFIED) [Suspect]
     Indication: PRODUCT USED FOR UNKNOWN INDICATION
     Dosage: (75 MG QD)
     Dates: start: 20100621
  5. DIAMICRON [Concomitant]
  6. GLUCOPHAGE [Concomitant]

REACTIONS (4)
  - TOXIC SKIN ERUPTION [None]
  - TONGUE DISCOLOURATION [None]
  - PYREXIA [None]
  - SKIN EXFOLIATION [None]
